FAERS Safety Report 8056267-4 (Version None)
Quarter: 2011Q4

REPORT INFORMATION
  Report Type: 
  Country: None (occurrence: None)
  Receive Date: 20111220
  Receipt Date: 20111004
  Transmission Date: 20120403
  Serious: Yes (Hospitalization)
  Sender: FDA-Public Use
  Company Number: PHEH2011US02440

PATIENT
  Age: 34 Year
  Sex: Female

DRUGS (1)
  1. MYFORTIC [Suspect]
     Indication: HEART TRANSPLANT
     Dosage: 360 MG, BID, ORAL, 720 MG, BID, ORAL
     Route: 048
     Dates: start: 20110511

REACTIONS (2)
  - HEART TRANSPLANT REJECTION [None]
  - HERPES ZOSTER [None]
